FAERS Safety Report 11602050 (Version 1)
Quarter: 2015Q4

REPORT INFORMATION
  Report Type: Spontaneous
  Country: US (occurrence: US)
  Receive Date: 20151006
  Receipt Date: 20151006
  Transmission Date: 20160304
  Serious: No
  Sender: FDA-Public Use
  Company Number: US-AMGEN-USASP2015056925

PATIENT
  Sex: Female

DRUGS (1)
  1. PROLIA [Suspect]
     Active Substance: DENOSUMAB
     Indication: OSTEOPOROSIS
     Dosage: UNK
     Route: 065
     Dates: start: 20150507, end: 20150507

REACTIONS (11)
  - Musculoskeletal stiffness [Unknown]
  - Adverse event [Unknown]
  - Nausea [Unknown]
  - Dyspnoea [Unknown]
  - Gastric disorder [Unknown]
  - Asthenia [Unknown]
  - Joint swelling [Unknown]
  - Pain in extremity [Unknown]
  - Vascular rupture [Unknown]
  - Arthralgia [Unknown]
  - Myalgia [Unknown]
